FAERS Safety Report 7313643-2 (Version None)
Quarter: 2011Q1

REPORT INFORMATION
  Report Type: 
  Country: None (occurrence: None)
  Receive Date: 20110225
  Receipt Date: 20110217
  Transmission Date: 20110831
  Serious: Yes (Other)
  Sender: FDA-Public Use
  Company Number: US-AMGEN-USASP2011009365

PATIENT
  Age: 81 Year
  Sex: Male

DRUGS (1)
  1. ENBREL [Suspect]
     Indication: PSORIASIS
     Dosage: 50 MG, 2 TIMES/WK
     Dates: start: 20061210

REACTIONS (5)
  - LACRIMATION INCREASED [None]
  - OCULAR HYPERAEMIA [None]
  - CRYING [None]
  - HAEMORRHAGIC DIATHESIS [None]
  - DYSPEPSIA [None]
